FAERS Safety Report 15172263 (Version 1)
Quarter: 2018Q3

REPORT INFORMATION
  Report Type: Spontaneous
  Country: US (occurrence: US)
  Receive Date: 20180622
  Receipt Date: 20180622
  Transmission Date: 20181010
  Serious: Yes (Other)
  Sender: FDA-Public Use
  Company Number: None

PATIENT
  Age: 48 Year
  Sex: Female

DRUGS (10)
  1. OCALIVA [Suspect]
     Active Substance: OBETICHOLIC ACID
     Indication: PRIMARY BILIARY CHOLANGITIS
     Route: 048
     Dates: start: 20171213
  2. CALTRATE 600 CHIN +D PLUS [Concomitant]
  3. SENNA.OSS   TAB 8.6?SOMG ` [Concomitant]
  4. U?RS?O?D?IO?L ??TAB?2?SO?M?G??? [Concomitant]
     Active Substance: URSODIOL
  5. ZANTAC [Concomitant]
     Active Substance: RANITIDINE HYDROCHLORIDE
  6. ATORVASTATIN TAB 20MG., EQUIVALENT TO LIPITOR TAB 20MG. MANUFACTURER: GREENSTONE GREENSTONE [Concomitant]
     Active Substance: ATORVASTATIN
  7. OMEPRAIBICAR CAP 40?1100   1 [Concomitant]
  8. ASPIRIN LCNV TAB 81MG EC [Concomitant]
  9. RIFAMPIN      CAP 1SOMG [Concomitant]
  10. SYNTHROID [Concomitant]
     Active Substance: LEVOTHYROXINE SODIUM

REACTIONS (2)
  - Blood thyroid stimulating hormone increased [None]
  - Pruritus [None]
